FAERS Safety Report 4653691-4 (Version None)
Quarter: 2005Q2

REPORT INFORMATION
  Report Type: 
  Country: None (occurrence: None)
  Receive Date: 20050505
  Receipt Date: 20050416
  Transmission Date: 20051028
  Serious: Yes (Hospitalization)
  Sender: FDA-Public Use
  Company Number: PHHO2005BR06267

PATIENT
  Age: 31 Year
  Sex: Female
  Weight: 88 kg

DRUGS (2)
  1. ELIDEL [Suspect]
     Dosage: UNK, UNK
     Route: 061
     Dates: start: 20050414, end: 20050415
  2. DESELEX [Concomitant]

REACTIONS (3)
  - DYSPNOEA [None]
  - ERYTHEMA [None]
  - SWELLING [None]
